FAERS Safety Report 9175314 (Version 1)
Quarter: 2013Q1

REPORT INFORMATION
  Report Type: Spontaneous
  Country: US (occurrence: US)
  Receive Date: 20130320
  Receipt Date: 20130320
  Transmission Date: 20140127
  Serious: Yes (Other)
  Sender: FDA-Public Use
  Company Number: US-ROCHE-1199161

PATIENT
  Age: 54 Year
  Sex: Female
  Weight: 62.65 kg

DRUGS (5)
  1. HERCEPTIN [Suspect]
     Indication: BREAST CANCER METASTATIC
     Route: 042
     Dates: start: 2009
  2. HERCEPTIN [Suspect]
     Route: 042
     Dates: start: 20130301, end: 20130301
  3. PEPCID [Concomitant]
     Route: 042
     Dates: start: 20130301, end: 20130301
  4. MOTRIN [Concomitant]
     Indication: PREMEDICATION
     Route: 065
     Dates: end: 20130301
  5. FASLODEX [Concomitant]
     Indication: BREAST CANCER
     Route: 030
     Dates: start: 20130301

REACTIONS (7)
  - Dyspnoea [Recovered/Resolved]
  - Chest discomfort [Recovered/Resolved]
  - Pyrexia [Recovered/Resolved]
  - Dyspnoea [Unknown]
  - Chills [Unknown]
  - Oxygen saturation decreased [Recovering/Resolving]
  - Infusion related reaction [Unknown]
